FAERS Safety Report 6775109-8 (Version None)
Quarter: 2010Q2

REPORT INFORMATION
  Report Type: 
  Country: None (occurrence: None)
  Receive Date: 20100617
  Receipt Date: 20100607
  Transmission Date: 20101027
  Serious: Yes (Other)
  Sender: FDA-Public Use
  Company Number: Z0001802B

PATIENT
  Age: 78 Year
  Sex: Female
  Weight: 77.5 kg

DRUGS (1)
  1. PAZOPANIB [Suspect]
     Indication: RENAL CELL CARCINOMA
     Dosage: 400MG PER DAY
     Route: 048
     Dates: start: 20090903

REACTIONS (1)
  - GAMMA-GLUTAMYLTRANSFERASE INCREASED [None]
